FAERS Safety Report 13214612 (Version 4)
Quarter: 2017Q1

REPORT INFORMATION
  Report Type: Spontaneous
  Country: BE (occurrence: BE)
  Receive Date: 20170210
  Receipt Date: 20170224
  Transmission Date: 20170428
  Serious: Yes (Other)
  Sender: FDA-Public Use
  Company Number: BE-PFIZER INC-2017059786

PATIENT
  Age: 61 Year
  Sex: Male

DRUGS (20)
  1. CARBOPLATIN. [Suspect]
     Active Substance: CARBOPLATIN
     Indication: NON-HODGKIN^S LYMPHOMA REFRACTORY
     Dosage: UNK
     Route: 065
  2. CYTARABINE. [Suspect]
     Active Substance: CYTARABINE
     Dosage: 200 MG/M2, CYCLIC (ON DAY 2,3,4 AND 5)
     Route: 065
  3. ETOPOSIDE. [Suspect]
     Active Substance: ETOPOSIDE
     Dosage: 200 MG/M2, CYCLIC (DAY 2-5)
     Route: 065
  4. CARMUSTINE [Suspect]
     Active Substance: CARMUSTINE
     Dosage: 300 MG/M2, CYCLIC (ON DAY 1)
     Route: 065
  5. DOXORUBICIN HCL [Suspect]
     Active Substance: DOXORUBICIN HYDROCHLORIDE
     Indication: NON-HODGKIN^S LYMPHOMA REFRACTORY
  6. ETOPOSIDE. [Suspect]
     Active Substance: ETOPOSIDE
     Indication: NON-HODGKIN^S LYMPHOMA REFRACTORY
     Dosage: 15 MG/M2, CYCLIC (ON DAY 2,3,4 AND 5)
     Route: 065
  7. CYCLOPHOSPHAMIDE. [Suspect]
     Active Substance: CYCLOPHOSPHAMIDE
     Dosage: UNK
     Route: 065
     Dates: start: 201308
  8. PREDNISONE. [Suspect]
     Active Substance: PREDNISONE
     Indication: NON-HODGKIN^S LYMPHOMA REFRACTORY
     Dosage: UNK
     Route: 065
  9. CARMUSTINE [Suspect]
     Active Substance: CARMUSTINE
     Indication: NON-HODGKIN^S LYMPHOMA REFRACTORY
     Dosage: 60 MG/M2, CYCLIC (ON DAY 1)
     Route: 065
  10. CYTARABINE. [Suspect]
     Active Substance: CYTARABINE
     Dosage: 400 MG/M2, CYCLIC (DAY 2-5)
     Route: 065
  11. DOXORUBICIN HCL [Suspect]
     Active Substance: DOXORUBICIN HYDROCHLORIDE
     Indication: HAEMATOPOIETIC STEM CELL MOBILISATION
     Dosage: UNK
     Route: 065
  12. MELPHALAN [Suspect]
     Active Substance: MELPHALAN
     Dosage: 140 MG/M2, CYCLIC (DAY 6)
     Route: 065
  13. CISPLATIN. [Suspect]
     Active Substance: CISPLATIN
     Indication: NON-HODGKIN^S LYMPHOMA REFRACTORY
     Dosage: UNK
     Route: 065
  14. CYCLOPHOSPHAMIDE. [Suspect]
     Active Substance: CYCLOPHOSPHAMIDE
     Indication: NON-HODGKIN^S LYMPHOMA REFRACTORY
     Dosage: UNK
     Route: 065
  15. RITUXIMAB [Suspect]
     Active Substance: RITUXIMAB
     Indication: NON-HODGKIN^S LYMPHOMA REFRACTORY
     Dosage: UNK
     Route: 065
  16. DEXAMETHASONE. [Suspect]
     Active Substance: DEXAMETHASONE
     Indication: NON-HODGKIN^S LYMPHOMA REFRACTORY
     Dosage: UNK
     Route: 065
  17. CYTARABINE. [Suspect]
     Active Substance: CYTARABINE
     Indication: NON-HODGKIN^S LYMPHOMA REFRACTORY
     Dosage: UNK
     Route: 065
  18. VINCRISTINE SULFATE. [Suspect]
     Active Substance: VINCRISTINE SULFATE
     Indication: NON-HODGKIN^S LYMPHOMA REFRACTORY
     Dosage: UNK
     Route: 065
  19. IFOSFAMIDE. [Suspect]
     Active Substance: IFOSFAMIDE
     Indication: NON-HODGKIN^S LYMPHOMA REFRACTORY
     Dosage: UNK
     Route: 065
  20. MELPHALAN [Suspect]
     Active Substance: MELPHALAN
     Indication: NON-HODGKIN^S LYMPHOMA REFRACTORY
     Dosage: 30 MG/M2, CYCLIC (ON DAY 6)
     Route: 065

REACTIONS (2)
  - Second primary malignancy [Recovering/Resolving]
  - Kaposi^s sarcoma [Recovering/Resolving]
